FAERS Safety Report 8451282-0 (Version None)
Quarter: 2012Q2

REPORT INFORMATION
  Report Type: 
  Country: None (occurrence: None)
  Receive Date: 20120620
  Receipt Date: 20120309
  Transmission Date: 20120825
  Serious: No
  Sender: FDA-Public Use
  Company Number: US-VERTEX PHARMACEUTICALS INC.-AE-2012-002295

PATIENT
  Sex: Female
  Weight: 87.168 kg

DRUGS (12)
  1. INCIVEK [Suspect]
     Indication: HEPATITIS C
     Route: 048
     Dates: start: 20111219
  2. RIBASPHERE [Concomitant]
     Route: 048
     Dates: start: 20120220
  3. METOPROLOL SUCCINATE [Concomitant]
     Indication: HYPERTENSION
     Route: 048
  4. BACLOFEN [Concomitant]
     Indication: MUSCLE SPASMS
     Route: 048
  5. PEGASYS [Concomitant]
     Indication: HEPATITIS C
     Route: 058
     Dates: start: 20111219
  6. RIBASPHERE [Concomitant]
     Indication: HEPATITIS C
     Route: 048
     Dates: start: 20111219, end: 20120202
  7. HYDROCODONE AP5-500 [Concomitant]
     Indication: PAIN
     Route: 048
  8. NAPROXEN [Concomitant]
     Indication: ARTHRITIS
     Route: 048
  9. GABAPENTIN [Concomitant]
     Indication: FIBROMYALGIA
     Route: 048
  10. CYCLOBENZAPRINE [Concomitant]
     Route: 048
  11. VENLAFAXINE HCL [Concomitant]
     Indication: ANXIETY
     Route: 048
  12. VENLAFAXINE HCL [Concomitant]
     Indication: IRRITABILITY

REACTIONS (7)
  - VITAMIN D DECREASED [None]
  - HAEMATOCHEZIA [None]
  - BLOOD CALCIUM DECREASED [None]
  - BLOOD COUNT ABNORMAL [None]
  - VOMITING [None]
  - NAUSEA [None]
  - HAEMORRHOIDS [None]
